FAERS Safety Report 18579272 (Version 1)
Quarter: 2020Q4

REPORT INFORMATION
  Report Type: Spontaneous
  Country: US (occurrence: US)
  Receive Date: 20201202
  Receipt Date: 20201202
  Transmission Date: 20210114
  Serious: No
  Sender: FDA-Public Use
  Company Number: None

PATIENT
  Age: 71 Year
  Sex: Male
  Weight: 64.41 kg

DRUGS (1)
  1. NIFEDIPINE (NIFEDIPINE (EQV-CC) 90MG TAB,SA) [Suspect]
     Active Substance: NIFEDIPINE
     Indication: HYPERTENSION
     Route: 048
     Dates: start: 20100203, end: 20200620

REACTIONS (3)
  - Oedema peripheral [None]
  - Therapy cessation [None]
  - Oedema [None]

NARRATIVE: CASE EVENT DATE: 20200620
